FAERS Safety Report 10198348 (Version 1)
Quarter: 2014Q2

REPORT INFORMATION
  Report Type: Spontaneous
  Country: US (occurrence: None)
  Receive Date: 20140523
  Receipt Date: 20140523
  Transmission Date: 20141212
  Serious: Yes (Other)
  Sender: FDA-Public Use
  Company Number: None

PATIENT
  Age: 17 Year
  Sex: Male
  Weight: 71.67 kg

DRUGS (5)
  1. CETIRIZINE [Suspect]
     Indication: SEASONAL ALLERGY
     Dosage: 1 TABLET
     Route: 048
     Dates: start: 20140507, end: 20140507
  2. CALCIUM [Concomitant]
  3. MESZOSIN [Concomitant]
  4. QUERCENKIN [Concomitant]
  5. ENZYMES [Concomitant]

REACTIONS (6)
  - Feeling abnormal [None]
  - Confusional state [None]
  - Fall [None]
  - Dizziness [None]
  - Convulsion [None]
  - Urinary retention [None]
